FAERS Safety Report 23354635 (Version 2)
Quarter: 2024Q1

REPORT INFORMATION
  Report Type: Spontaneous
  Country: US (occurrence: US)
  Receive Date: 20240101
  Receipt Date: 20240116
  Transmission Date: 20240410
  Serious: Yes (Hospitalization)
  Sender: FDA-Public Use
  Company Number: US-MALLINCKRODT-MNK202305806

PATIENT
  Age: 49 Year
  Sex: Female
  Weight: 194 kg

DRUGS (2)
  1. CORTICOTROPIN [Suspect]
     Active Substance: CORTICOTROPIN
     Indication: Cardiac sarcoidosis
     Route: 030
  2. CORTICOTROPIN [Suspect]
     Active Substance: CORTICOTROPIN
     Dosage: 80 UNITS
     Route: 058

REACTIONS (6)
  - Cardiac sarcoidosis [Not Recovered/Not Resolved]
  - Condition aggravated [Unknown]
  - Musculoskeletal stiffness [Unknown]
  - Pain [Unknown]
  - Eye discharge [Unknown]
  - Underdose [Unknown]

NARRATIVE: CASE EVENT DATE: 20231218
